FAERS Safety Report 25553213 (Version 1)
Quarter: 2025Q3

REPORT INFORMATION
  Report Type: Spontaneous
  Country: EU (occurrence: EU)
  Receive Date: 20250715
  Receipt Date: 20250715
  Transmission Date: 20251021
  Serious: Yes (Death, Hospitalization, Other)
  Sender: DR REDDYS
  Company Number: None

PATIENT
  Age: 80 Year
  Sex: Male

DRUGS (12)
  1. LEVETIRACETAM [Suspect]
     Active Substance: LEVETIRACETAM
     Indication: Epilepsy
     Dosage: 1-0-2?500 MG
     Dates: start: 202502
  2. LEVETIRACETAM [Suspect]
     Active Substance: LEVETIRACETAM
     Indication: Epilepsy
     Dosage: 1-0-1?250 MG FILMTABLETTEN
     Route: 048
     Dates: end: 20250614
  3. ASPIRIN [Concomitant]
     Active Substance: ASPIRIN
     Indication: Product used for unknown indication
     Dosage: 1-0-0?100 MG TAH
     Route: 048
     Dates: start: 20250607, end: 20250620
  4. Piperacillin plus Tazobactam Eberth [Concomitant]
     Indication: Product used for unknown indication
     Dosage: 1-1-1?4 G / 0,5 G
     Route: 042
     Dates: start: 20250611, end: 20250620
  5. Ampicillin plus Sulbactam Eberth [Concomitant]
     Indication: Product used for unknown indication
     Dosage: 1-1-1? 2G/1G
     Route: 042
     Dates: start: 20250607, end: 20250610
  6. PANTOPRAZOLE SODIUM [Concomitant]
     Active Substance: PANTOPRAZOLE SODIUM
     Indication: Product used for unknown indication
     Dosage: 1-0-0?20 MG GASTRO-RESISTANT TABLETS
     Route: 048
     Dates: start: 20250607, end: 20250620
  7. SODIUM BICARBONATE [Concomitant]
     Active Substance: SODIUM BICARBONATE
     Indication: Product used for unknown indication
     Dosage: 1-1-1? 1 G
     Route: 048
     Dates: start: 20250607, end: 20250612
  8. PANCRELIPASE [Concomitant]
     Active Substance: PANCRELIPASE
     Indication: Product used for unknown indication
     Dosage: 1-1-0?25000
     Route: 048
     Dates: start: 20250607, end: 20250620
  9. Clopidogrel TAD [Concomitant]
     Indication: Product used for unknown indication
     Dosage: 1-0-0?75 MG
     Route: 048
     Dates: start: 20250607, end: 20250609
  10. TORSEMIDE [Concomitant]
     Active Substance: TORSEMIDE
     Indication: Product used for unknown indication
     Dosage: 1-0-0?10 MG TABLETS
     Route: 048
     Dates: start: 20250607, end: 20250611
  11. BISOPROLOL FUMARATE [Concomitant]
     Active Substance: BISOPROLOL FUMARATE
     Indication: Product used for unknown indication
     Dosage: 1-0-0.5?5 MG FILM-COATED TABLETS
     Route: 048
     Dates: start: 20250607, end: 20250620
  12. SIMVASTATIN [Concomitant]
     Active Substance: SIMVASTATIN
     Indication: Product used for unknown indication
     Dosage: 0-0-1?20 MG FILM-COATED TABLETS
     Route: 048
     Dates: start: 20250607, end: 20250609

REACTIONS (4)
  - Toxic epidermal necrolysis [Fatal]
  - Stevens-Johnson syndrome [Fatal]
  - Septic shock [Fatal]
  - Skin reaction [Unknown]

NARRATIVE: CASE EVENT DATE: 20250201
